FAERS Safety Report 4562409-5 (Version None)
Quarter: 2005Q1

REPORT INFORMATION
  Report Type: 
  Country: None (occurrence: None)
  Receive Date: 20050127
  Receipt Date: 20041008
  Transmission Date: 20050727
  Serious: No
  Sender: FDA-Public Use
  Company Number: US-BRISTOL-MYERS SQUIBB COMPANY-12726691

PATIENT
  Age: 75 Year
  Sex: Male

DRUGS (2)
  1. TEQUIN [Suspect]
     Indication: CATARACT
     Route: 031
     Dates: start: 20040913, end: 20040913
  2. KENALOG [Suspect]
     Indication: CATARACT
     Route: 031
     Dates: start: 20040913, end: 20040913

REACTIONS (1)
  - ENDOPHTHALMITIS [None]
